FAERS Safety Report 10351580 (Version 1)
Quarter: 2014Q3

REPORT INFORMATION
  Report Type: Spontaneous
  Country: US (occurrence: US)
  Receive Date: 20140730
  Receipt Date: 20140730
  Transmission Date: 20150326
  Serious: Yes (Other)
  Sender: FDA-Public Use
  Company Number: US-BAYER-2014-113466

PATIENT
  Sex: Female

DRUGS (2)
  1. ESSURE [Suspect]
     Active Substance: DEVICE
     Indication: STERILISATION
  2. MIRENA [Suspect]
     Active Substance: LEVONORGESTREL
     Indication: GENITAL HAEMORRHAGE
     Dosage: 20 MCG/24HR, CONT
     Route: 015
     Dates: start: 20140717

REACTIONS (2)
  - Post procedural haemorrhage [Not Recovered/Not Resolved]
  - Off label use [Unknown]
